FAERS Safety Report 7320703 (Version 2)
Quarter: 2013Q3

REPORT INFORMATION
  Report Type: Spontaneous
  Country: KR (occurrence: None)
  Receive Date: 20100224
  Receipt Date: 20130708
  Transmission Date: 20140515
  Serious: Yes (Other)
  Sender: FDA-Public Use
  Company Number: AUR-APL-2010-00512

PATIENT
  Age: 64 Year
  Sex: Female

DRUGS (3)
  1. MIRTAZAPINE [Suspect]
     Indication: DEPRESSION
     Dosage: 15-45MG - DAILY
     Dates: start: 2003, end: 200805
  2. PREGABALIN [Suspect]
     Indication: BACK PAIN
     Dosage: 300MG - DAILY
     Dates: start: 200804
  3. PREGABALIN [Suspect]
     Indication: MUSCULOSKELETAL PAIN
     Dosage: 300MG - DAILY
     Dates: start: 200804

REACTIONS (6)
  - Back pain [None]
  - Musculoskeletal pain [None]
  - Paraesthesia [None]
  - Refusal of treatment by patient [None]
  - Limb discomfort [None]
  - Restless legs syndrome [None]
